FAERS Safety Report 10460931 (Version 1)
Quarter: 2014Q3

REPORT INFORMATION
  Report Type: Spontaneous
  Country: TN (occurrence: None)
  Receive Date: 20140916
  Receipt Date: 20140916
  Transmission Date: 20150326
  Serious: Yes (Other)
  Sender: FDA-Public Use
  Company Number: FK201102793

PATIENT
  Age: 53 Year
  Sex: Female

DRUGS (6)
  1. FOLINIC ACID [Suspect]
     Active Substance: LEUCOVORIN
     Indication: ACUTE LYMPHOCYTIC LEUKAEMIA
  2. MERCAPTOPURINE. [Suspect]
     Active Substance: MERCAPTOPURINE
     Indication: ACUTE LYMPHOCYTIC LEUKAEMIA
  3. AMIKACIN [Suspect]
     Active Substance: AMIKACIN
     Indication: ACUTE LYMPHOCYTIC LEUKAEMIA
  4. IMIPENEM [Suspect]
     Active Substance: IMIPENEM
     Indication: ACUTE LYMPHOCYTIC LEUKAEMIA
  5. METHOTREXATE [Suspect]
     Active Substance: METHOTREXATE
     Indication: ACUTE LYMPHOCYTIC LEUKAEMIA
  6. CILASTATIN [Suspect]
     Active Substance: CILASTATIN
     Indication: ACUTE LYMPHOCYTIC LEUKAEMIA

REACTIONS (12)
  - Medication error [None]
  - Hepatotoxicity [None]
  - Pancytopenia [None]
  - Mucosal inflammation [None]
  - Vomiting [None]
  - Diarrhoea [None]
  - Incorrect drug administration duration [None]
  - Abdominal pain [None]
  - Poisoning [None]
  - Fluid overload [None]
  - Renal failure acute [None]
  - Odynophagia [None]
